FAERS Safety Report 15600517 (Version 2)
Quarter: 2019Q1

REPORT INFORMATION
  Report Type: Spontaneous
  Country: US (occurrence: US)
  Receive Date: 20181109
  Receipt Date: 20190103
  Transmission Date: 20190417
  Serious: No
  Sender: FDA-Public Use
  Company Number: US-TEVA-2018-US-973334

PATIENT
  Age: 36 Year
  Sex: Female

DRUGS (9)
  1. ISONIAZID. [Concomitant]
     Active Substance: ISONIAZID
  2. COPAXONE [Suspect]
     Active Substance: GLATIRAMER ACETATE
     Indication: MULTIPLE SCLEROSIS
     Route: 058
     Dates: start: 20180629
  3. CLOBETASOL [Concomitant]
     Active Substance: CLOBETASOL
  4. TRAZODONE [Concomitant]
     Active Substance: TRAZODONE HYDROCHLORIDE
  5. ESTRADIOL. [Concomitant]
     Active Substance: ESTRADIOL
  6. KETOCONAZOLE. [Concomitant]
     Active Substance: KETOCONAZOLE
  7. TOPIRAMATE. [Concomitant]
     Active Substance: TOPIRAMATE
  8. VENLAFAXINE [Concomitant]
     Active Substance: VENLAFAXINE HYDROCHLORIDE
  9. OTEZLA [Concomitant]
     Active Substance: APREMILAST

REACTIONS (3)
  - Injection site mass [Not Recovered/Not Resolved]
  - Injection site pruritus [Not Recovered/Not Resolved]
  - Injection site rash [Not Recovered/Not Resolved]

NARRATIVE: CASE EVENT DATE: 20181031
